FAERS Safety Report 9331608 (Version 2)
Quarter: 2013Q3

REPORT INFORMATION
  Report Type: Spontaneous
  Country: US (occurrence: US)
  Receive Date: 20130605
  Receipt Date: 20130807
  Transmission Date: 20140515
  Serious: Yes (Other)
  Sender: FDA-Public Use
  Company Number: US-BAYER-2013-068346

PATIENT
  Age: 46 Year
  Sex: Female

DRUGS (2)
  1. BEYAZ [Suspect]
     Dosage: UNK
     Dates: start: 20100801, end: 20110628
  2. IBUPROFEN [Concomitant]

REACTIONS (4)
  - Deep vein thrombosis [None]
  - Injury [None]
  - Pain [None]
  - Emotional distress [None]
